FAERS Safety Report 6743952-7 (Version None)
Quarter: 2010Q2

REPORT INFORMATION
  Report Type: 
  Country: None (occurrence: None)
  Receive Date: 20100527
  Receipt Date: 20100517
  Transmission Date: 20101027
  Serious: Yes (Hospitalization)
  Sender: FDA-Public Use
  Company Number: PHHY2010US21186

PATIENT
  Sex: Female

DRUGS (17)
  1. DIOVAN [Suspect]
     Dosage: 160 MG, QD
     Dates: start: 20100305, end: 20100327
  2. VERAPAMIL [Concomitant]
  3. HYDROXYCHLOROQUINE SULFATE [Concomitant]
     Dosage: UNK
  4. CLONIDINE [Concomitant]
  5. ASPIRIN [Concomitant]
     Dosage: 81 MG
  6. PREDNISONE TAB [Concomitant]
     Dosage: 5 MG
  7. ANTIHYPERTENSIVES [Concomitant]
  8. FUROSEMIDE [Concomitant]
     Dosage: 20 MG
  9. ATENOLOL [Concomitant]
  10. DERATAMIL [Concomitant]
     Dosage: 1240 MG
  11. COLOZEPAM [Concomitant]
     Dosage: 5 MG
  12. PLAQUENIL [Concomitant]
     Dosage: 200 MG
  13. LIDODERM [Concomitant]
  14. PREMARIN [Concomitant]
  15. PRILOSEC [Concomitant]
  16. TRAMADOL HCL [Concomitant]
  17. TYLENOL (CAPLET) [Concomitant]

REACTIONS (5)
  - DISORIENTATION [None]
  - DRUG HYPERSENSITIVITY [None]
  - MALAISE [None]
  - ORAL DISCOMFORT [None]
  - SWOLLEN TONGUE [None]
